FAERS Safety Report 18638967 (Version 1)
Quarter: 2020Q4

REPORT INFORMATION
  Report Type: Spontaneous
  Country: US (occurrence: US)
  Receive Date: 20201219
  Receipt Date: 20201219
  Transmission Date: 20210114
  Serious: No
  Sender: FDA-Public Use
  Company Number: US-009507513-2012USA007959

PATIENT
  Sex: Female

DRUGS (3)
  1. ELOCON [Suspect]
     Active Substance: MOMETASONE FUROATE
     Dosage: 0.1%, 45 GRAM
     Route: 061
  2. ELOCON [Suspect]
     Active Substance: MOMETASONE FUROATE
     Dosage: 0.1%, 15 GRAM
     Route: 061
     Dates: start: 2015
  3. MOMETASONE FUROATE (WARRICK) [Suspect]
     Active Substance: MOMETASONE FUROATE
     Dosage: 0.1%,15GRAM AS NEEDED
     Route: 061

REACTIONS (1)
  - Drug ineffective [Unknown]
